FAERS Safety Report 6579786-6 (Version None)
Quarter: 2010Q1

REPORT INFORMATION
  Report Type: 
  Country: None (occurrence: None)
  Receive Date: 20100212
  Receipt Date: 20100209
  Transmission Date: 20100710
  Serious: Yes (Other)
  Sender: FDA-Public Use
  Company Number: DE-SANOFI-AVENTIS-2010SA007753

PATIENT
  Age: 53 Year
  Sex: Female
  Weight: 166 kg

DRUGS (1)
  1. LANTUS [Suspect]
     Route: 058
     Dates: start: 20091101

REACTIONS (1)
  - THROMBOCYTOPENIA [None]
